FAERS Safety Report 9654860 (Version 2)
Quarter: 2013Q4

REPORT INFORMATION
  Report Type: Report from Study
  Country: CO (occurrence: CO)
  Receive Date: 20131029
  Receipt Date: 20131111
  Transmission Date: 20140711
  Serious: Yes (Death, Hospitalization)
  Sender: FDA-Public Use
  Company Number: CO-ROCHE-1296074

PATIENT
  Age: 49 Year
  Sex: Female

DRUGS (2)
  1. PEGASYS [Suspect]
     Indication: HEPATITIS C
     Route: 058
     Dates: start: 20130816
  2. RIBAVIRIN [Suspect]
     Indication: HEPATITIS C
     Route: 048
     Dates: start: 20130816

REACTIONS (3)
  - Cholecystitis [Recovered/Resolved]
  - Pneumonia [Fatal]
  - Pleural effusion [Fatal]
